FAERS Safety Report 8007066 (Version 5)
Quarter: 2013Q3

REPORT INFORMATION
  Report Type: Report from Study
  Country: AU (occurrence: AU)
  Receive Date: 20110623
  Receipt Date: 20130718
  Transmission Date: 20140515
  Serious: Yes (Hospitalization, Other)
  Sender: FDA-Public Use
  Company Number: PHHY2011AU51342

PATIENT
  Age: 30 Year
  Sex: Female

DRUGS (17)
  1. CLOZARIL [Suspect]
     Indication: SCHIZOPHRENIA
     Dosage: 75 MG, DAILY
     Route: 048
     Dates: start: 20090707
  2. CLOZARIL [Suspect]
     Dosage: UNK
     Route: 048
     Dates: start: 200910
  3. CLOZARIL [Suspect]
     Dosage: 50 MG, DAILY
     Route: 048
  4. CLOZARIL [Suspect]
     Dosage: 25 MG, UNK
     Route: 048
     Dates: start: 20121204, end: 20121210
  5. CLOZARIL [Suspect]
     Dosage: 150 MG, (NOCTE)
     Dates: start: 200912, end: 201211
  6. CLOZARIL [Suspect]
     Dosage: 100 MG, UNK
     Dates: start: 20121210
  7. CLOZARIL [Suspect]
     Dosage: 75 MG, DAILY
     Route: 048
     Dates: start: 20121217
  8. CLOZARIL [Suspect]
     Dosage: UNK
     Route: 048
     Dates: end: 20121220
  9. CLOZARIL [Suspect]
     Dosage: UNK
     Dates: end: 201301
  10. CLOZARIL [Suspect]
     Dosage: 75 MG, UNK
     Dates: start: 201306, end: 20130709
  11. ARIPIPRAZOLE [Concomitant]
     Dosage: 10 MG, DAILY
  12. ARIPIPRAZOLE [Concomitant]
     Dosage: 20 MG, DAILY
  13. AMISULPRIDE [Concomitant]
     Dosage: UNK UKN, UNK
     Dates: start: 20121224
  14. AMISULPRIDE [Concomitant]
     Dosage: 400 MG, BID
  15. AMISULPRIDE [Concomitant]
     Dosage: 600 MG, BID
  16. RISPERDAL [Concomitant]
     Indication: AGITATION
     Dosage: 1 MG, BID
     Dates: start: 20121121
  17. RISPERDAL [Concomitant]
     Dosage: 2 MG, BID

REACTIONS (17)
  - Suicide attempt [Unknown]
  - Multiple injuries [Unknown]
  - Schizophrenia [Unknown]
  - Delusion [Unknown]
  - Agitation [Unknown]
  - Hallucination [Unknown]
  - Abnormal behaviour [Unknown]
  - Psychiatric symptom [Not Recovered/Not Resolved]
  - Arrhythmia [Unknown]
  - Troponin increased [Unknown]
  - Dyspnoea [Recovered/Resolved]
  - Chest pain [Recovered/Resolved]
  - Electrocardiogram change [Unknown]
  - Electrocardiogram QT prolonged [Unknown]
  - Tachycardia [Recovered/Resolved]
  - Electrocardiogram T wave inversion [Unknown]
  - Drug ineffective [Unknown]
